FAERS Safety Report 20758791 (Version 2)
Quarter: 2022Q4

REPORT INFORMATION
  Report Type: Report from Study
  Country: US (occurrence: US)
  Receive Date: 20220427
  Receipt Date: 20221214
  Transmission Date: 20230113
  Serious: No
  Sender: FDA-Public Use
  Company Number: US-KYOWAKIRIN-2022BKK005883

PATIENT

DRUGS (2)
  1. CRYSVITA [Suspect]
     Active Substance: BUROSUMAB-TWZA
     Indication: Hereditary hypophosphataemic rickets
     Dosage: 30 MG/ML, EVERY 14 DAYS
     Route: 065
     Dates: start: 20210321
  2. CRYSVITA [Suspect]
     Active Substance: BUROSUMAB-TWZA
     Indication: Hereditary hypophosphataemic rickets
     Dosage: 24.4 MG, 1X/2 WEEKS
     Route: 058
     Dates: start: 20220309

REACTIONS (5)
  - Mood swings [Unknown]
  - Irritability [Unknown]
  - Pain [Unknown]
  - Toothache [Unknown]
  - Incorrect dose administered [Unknown]
